FAERS Safety Report 24954595 (Version 1)
Quarter: 2025Q1

REPORT INFORMATION
  Report Type: Spontaneous
  Country: US (occurrence: US)
  Receive Date: 20250211
  Receipt Date: 20250211
  Transmission Date: 20250409
  Serious: No
  Sender: ELI LILLY AND COMPANY
  Company Number: US-ELI_LILLY_AND_COMPANY-US202501021070

PATIENT
  Age: 27 Year
  Sex: Female

DRUGS (2)
  1. OLUMIANT [Suspect]
     Active Substance: BARICITINIB
     Indication: Alopecia areata
     Dosage: 2 MG, DAILY
     Route: 048
  2. OLUMIANT [Suspect]
     Active Substance: BARICITINIB
     Dosage: 4 MG, DAILY
     Route: 048

REACTIONS (6)
  - Mobility decreased [Unknown]
  - Somnolence [Unknown]
  - Abdominal discomfort [Unknown]
  - Fatigue [Not Recovered/Not Resolved]
  - Headache [Not Recovered/Not Resolved]
  - Acne [Unknown]
